FAERS Safety Report 6594971-5 (Version None)
Quarter: 2010Q1

REPORT INFORMATION
  Report Type: 
  Country: None (occurrence: None)
  Receive Date: 20100222
  Receipt Date: 20100208
  Transmission Date: 20100710
  Serious: Yes (Other)
  Sender: FDA-Public Use
  Company Number: US-ELI_LILLY_AND_COMPANY-US201001000890

PATIENT
  Sex: Female

DRUGS (4)
  1. FORTEO [Suspect]
     Indication: OSTEOPOROSIS
     Dosage: 20 UG, DAILY (1/D)
     Dates: start: 20090501
  2. ASPIRIN [Concomitant]
     Dosage: 8 MG, UNKNOWN
     Route: 065
  3. PRAVASTATIN [Concomitant]
     Dosage: 10 MG, DAILY (1/D)
     Route: 065
  4. PREMARIN [Concomitant]
     Dosage: UNK, UNKNOWN
     Route: 067

REACTIONS (10)
  - ABDOMINAL PAIN UPPER [None]
  - CARDIOVASCULAR DISORDER [None]
  - CYSTITIS [None]
  - DECREASED ACTIVITY [None]
  - DIARRHOEA [None]
  - DRUG DOSE OMISSION [None]
  - HEART RATE INCREASED [None]
  - MALAISE [None]
  - POSTURAL ORTHOSTATIC TACHYCARDIA SYNDROME [None]
  - VENTRICULAR TACHYCARDIA [None]
